FAERS Safety Report 7437099-4 (Version None)
Quarter: 2011Q2

REPORT INFORMATION
  Report Type: 
  Country: None (occurrence: None)
  Receive Date: 20110426
  Receipt Date: 20110421
  Transmission Date: 20111010
  Serious: Yes (Hospitalization)
  Sender: FDA-Public Use
  Company Number: US-SANOFI-AVENTIS-2011SA025306

PATIENT
  Age: 61 Year
  Sex: Female

DRUGS (2)
  1. LOVENOX [Suspect]
     Indication: PROPHYLAXIS
     Route: 058
     Dates: start: 20110326
  2. LOVENOX [Suspect]
     Route: 058
     Dates: start: 20110326

REACTIONS (2)
  - UPPER LIMB FRACTURE [None]
  - FALL [None]
